FAERS Safety Report 4951523-8 (Version None)
Quarter: 2006Q1

REPORT INFORMATION
  Report Type: 
  Country: None (occurrence: None)
  Receive Date: 20060317
  Receipt Date: 20060228
  Transmission Date: 20060701
  Serious: Yes (Hospitalization)
  Sender: FDA-Public Use
  Company Number: 6021093

PATIENT
  Age: 83 Year
  Sex: Female

DRUGS (2)
  1. ATENOLOL [Suspect]
     Indication: ESSENTIAL HYPERTENSION
     Dosage: 50,000 NG (50 MG, 1 IN 1 D); ORAL
     Route: 048
     Dates: start: 20040312
  2. KARVEA (TABLET) (IRBESARTAN) [Concomitant]

REACTIONS (4)
  - BRADYCARDIA [None]
  - CONFUSIONAL STATE [None]
  - LETHARGY [None]
  - RENAL FAILURE ACUTE [None]
